FAERS Safety Report 8363119-9 (Version None)
Quarter: 2012Q2

REPORT INFORMATION
  Report Type: 
  Country: None (occurrence: None)
  Receive Date: 20120514
  Receipt Date: 20120514
  Transmission Date: 20120825
  Serious: Yes (Hospitalization)
  Sender: FDA-Public Use
  Company Number: None

PATIENT
  Sex: Female

DRUGS (2)
  1. PROCRIT [Suspect]
     Indication: ANAEMIA
     Dates: start: 20111114, end: 20120320
  2. PROCRIT [Suspect]
     Indication: RENAL FAILURE CHRONIC
     Dates: start: 20111114, end: 20120320

REACTIONS (1)
  - CEREBROVASCULAR ACCIDENT [None]
